FAERS Safety Report 9520236 (Version 1)
Quarter: 2013Q1

REPORT INFORMATION
  Report Type: Spontaneous
  Country: US (occurrence: None)
  Receive Date: 20130305
  Receipt Date: 20130305
  Transmission Date: 20140127
  Serious: Yes (Hospitalization)
  Sender: FDA-Public Use
  Company Number: 163-21880-12022546

PATIENT
  Age: 52 Year
  Sex: Male
  Weight: 90.72 kg

DRUGS (23)
  1. REVLIMID [Suspect]
     Indication: PLASMA CELL MYELOMA
     Dosage: DAYS 1-21 EVERY 28 DAYS
     Route: 048
     Dates: start: 20111007
  2. VELCADE (BORTEZOMIB) [Concomitant]
  3. ASPIRIN (ACETYLSALICYLIC ACID) [Concomitant]
  4. ALLEGRA [Concomitant]
  5. VYTORIN (INEGY) [Concomitant]
  6. MOBIC (MELOXICAM) [Concomitant]
  7. AMITRIPTYLINE (AMITRIPTYLINE) [Concomitant]
  8. LYRICA (PREGABALIN) [Concomitant]
  9. PRILOSEC (LANSOPRAZOLE) [Concomitant]
  10. PERCOCET (OXYCOCET) [Concomitant]
  11. ALBUTEROL (SALBUTAMOL) [Concomitant]
  12. DEXAMETHASONE (DEXAMETASONE) [Concomitant]
  13. COUMADIN (WARFARIN SODIUM) [Concomitant]
  14. SOLU-MEDROL (METHYLPREDNISOLONE SODIUM SUCCINATE) [Concomitant]
  15. BENADRYL (DIPHENHYDRAMINE HYDROCHLORIDE) [Concomitant]
  16. STAT NEBULIZER (ALL OTHER THERAPEUTIC PRODUCTS) [Concomitant]
  17. METHADONE (METHADONE) [Concomitant]
  18. ZOCOR (SIMAVASTATIN) [Concomitant]
  19. PROZAC (FLUOXETINE HYDROCHLORIDE) [Concomitant]
  20. ATIVAN (LORAZEPAM) [Concomitant]
  21. LASIX (FUROSEMIDE) [Concomitant]
  22. POTASSIUM CHLORIDE (POTASSIUM CHLORIDE) [Concomitant]
  23. ZOMIG (ZOLMITRIPTAN) [Concomitant]

REACTIONS (8)
  - Deep vein thrombosis [None]
  - Pulmonary embolism [None]
  - Febrile neutropenia [None]
  - Local swelling [None]
  - Abdominal distension [None]
  - Weight increased [None]
  - Fatigue [None]
  - Nausea [None]
